FAERS Safety Report 8077135-8 (Version None)
Quarter: 2011Q4

REPORT INFORMATION
  Report Type: 
  Country: None (occurrence: None)
  Receive Date: 20111221
  Receipt Date: 20111012
  Transmission Date: 20120403
  Serious: Yes (Other)
  Sender: FDA-Public Use
  Company Number: PHHY2011US63824

PATIENT
  Age: 38 Year
  Sex: Female
  Weight: 81.7 kg

DRUGS (4)
  1. EXJADE [Suspect]
     Indication: HAEMOCHROMATOSIS
     Dosage: 1000 MG DAILY, ORAL
     Route: 048
     Dates: start: 20110427
  2. EXJADE [Suspect]
     Indication: TRANSFUSION
     Dosage: 1000 MG DAILY, ORAL
     Route: 048
     Dates: start: 20110427
  3. EXJADE [Suspect]
     Indication: SICKLE CELL ANAEMIA
     Dosage: 1000 MG DAILY, ORAL
     Route: 048
     Dates: start: 20110427
  4. IMMUNE GLOBULIN INTRAVENOUS (HUMAN) [Concomitant]

REACTIONS (3)
  - SICKLE CELL ANAEMIA [None]
  - NAUSEA [None]
  - ABDOMINAL PAIN UPPER [None]
